FAERS Safety Report 5895300-2 (Version None)
Quarter: 2008Q3

REPORT INFORMATION
  Report Type: 
  Country: None (occurrence: None)
  Receive Date: 20080924
  Receipt Date: 20080915
  Transmission Date: 20090109
  Serious: Yes (Hospitalization)
  Sender: FDA-Public Use
  Company Number: US-ABBOTT-08P-163-0476567-00

PATIENT
  Sex: Male
  Weight: 79.45 kg

DRUGS (8)
  1. HUMIRA [Suspect]
     Indication: CROHN'S DISEASE
     Dosage: STARTER DOSE
     Route: 058
     Dates: start: 20070801, end: 20080904
  2. HUMIRA [Suspect]
     Route: 058
  3. HUMIRA [Suspect]
     Route: 058
     Dates: start: 20080904
  4. LYCRIA [Suspect]
     Indication: PAIN
     Route: 048
     Dates: start: 20071101, end: 20071201
  5. UNKNOWN MEDICATION [Concomitant]
     Indication: HYPERTENSION
  6. RABEPRAZOLE SODIUM [Concomitant]
     Indication: DYSPEPSIA
     Route: 048
  7. UNKNOWN MEDICATION [Concomitant]
     Indication: DEPRESSION
  8. UNKNOWN MEDICATION [Concomitant]
     Indication: SLEEP DISORDER

REACTIONS (2)
  - INTESTINAL OBSTRUCTION [None]
  - SMALL INTESTINAL STENOSIS [None]
